FAERS Safety Report 9714403 (Version 1)
Quarter: 2013Q4

REPORT INFORMATION
  Report Type: Spontaneous
  Country: IT (occurrence: IT)
  Receive Date: 20131126
  Receipt Date: 20131126
  Transmission Date: 20140711
  Serious: Yes (Other)
  Sender: FDA-Public Use
  Company Number: IT-TEVA-444674ISR

PATIENT
  Age: 67 Year
  Sex: Female

DRUGS (2)
  1. OXALIPLATINO [Suspect]
     Indication: COLON CANCER METASTATIC
     Dosage: 85 MG/M2 DAILY; CONCENTRATE FOR SOLUTION FOR INTRAVENOUS INFUSION
     Route: 042
     Dates: start: 20130705, end: 20130923
  2. FLUOROURACILE [Concomitant]
     Indication: COLON CANCER METASTATIC
     Dosage: CONCENTRATE FOR SOLUTION FOR INTRAVENOUS INFUSION
     Dates: start: 20130705, end: 20130923

REACTIONS (3)
  - Laryngospasm [Unknown]
  - Dyspnoea [Unknown]
  - Stridor [Unknown]
